FAERS Safety Report 13123410 (Version 1)
Quarter: 2017Q1

REPORT INFORMATION
  Report Type: Spontaneous
  Country: US (occurrence: US)
  Receive Date: 20170117
  Receipt Date: 20170117
  Transmission Date: 20170428
  Serious: Yes (Hospitalization)
  Sender: FDA-Public Use
  Company Number: US-FRESENIUS MEDICAL CARE RENAL THERAPIES GROUP-FMC-1611-001264

PATIENT
  Age: 72 Year
  Sex: Male

DRUGS (2)
  1. DELFLEX WITH DEXTROSE 2.5% LOW MAGNESIUM LOW CALCIUM [Suspect]
     Active Substance: CALCIUM CHLORIDE\DEXTROSE\MAGNESIUM CHLORIDE\SODIUM CHLORIDE\SODIUM LACTATE
     Indication: END STAGE RENAL DISEASE
     Dosage: CAPD 2 L X 4 EXCHANGE AND ON 12-OCT-2015 CCPD 5 EXCHANGE 2 L FILL X 4  1L 1.30 HOUR DWELL (1.5% AND
     Route: 033
     Dates: start: 20150807
  2. DELFLEX WITH DEXTROSE 1.5% LOW MAGNESIUM LOW CALCIUM [Suspect]
     Active Substance: CALCIUM CHLORIDE\DEXTROSE\MAGNESIUM CHLORIDE\SODIUM CHLORIDE\SODIUM LACTATE
     Indication: END STAGE RENAL DISEASE
     Dosage: CAPD 2 L X 4 EXCHANGE AND ON 12-OCT-2015 CCPD 5 EXCHANGE 2 L FILL X 4  1L 1.30 HOUR DWELL (1.5% AND
     Route: 033
     Dates: start: 20150807

REACTIONS (3)
  - Peritonitis bacterial [Recovering/Resolving]
  - Pseudomonas test positive [None]
  - Morganella test positive [None]

NARRATIVE: CASE EVENT DATE: 20161019
